FAERS Safety Report 11825564 (Version 2)
Quarter: 2016Q3

REPORT INFORMATION
  Report Type: Spontaneous
  Country: US (occurrence: US)
  Receive Date: 20151211
  Receipt Date: 20160725
  Transmission Date: 20161109
  Serious: No
  Sender: FDA-Public Use
  Company Number: US-JNJFOC-20150707857

PATIENT
  Age: 56 Year
  Sex: Female

DRUGS (12)
  1. ACYCLOVIR. [Concomitant]
     Active Substance: ACYCLOVIR
  2. BENADRYL [Concomitant]
     Active Substance: DIPHENHYDRAMINE HYDROCHLORIDE
  3. BOTOX [Concomitant]
     Active Substance: ONABOTULINUMTOXINA
  4. FLUTICASONE PROPIONATE. [Concomitant]
     Active Substance: FLUTICASONE PROPIONATE
  5. KLONOPIN [Concomitant]
     Active Substance: CLONAZEPAM
  6. LEXAPRO [Concomitant]
     Active Substance: ESCITALOPRAM OXALATE
  7. ASPIRIN. [Concomitant]
     Active Substance: ASPIRIN
  8. IMBRUVICA [Suspect]
     Active Substance: IBRUTINIB
     Indication: WALDENSTROM^S MACROGLOBULINAEMIA
     Route: 048
     Dates: start: 20150605
  9. RELPAX [Concomitant]
     Active Substance: ELETRIPTAN HYDROBROMIDE
  10. SIMVASTATIN. [Concomitant]
     Active Substance: SIMVASTATIN
  11. WELLBUTRIN [Concomitant]
     Active Substance: BUPROPION HYDROCHLORIDE
  12. PROMETHAZINE [Concomitant]
     Active Substance: PROMETHAZINE\PROMETHAZINE HYDROCHLORIDE

REACTIONS (8)
  - Alopecia [Unknown]
  - Nausea [Unknown]
  - Pain in extremity [Unknown]
  - Night sweats [Unknown]
  - Muscle spasms [Unknown]
  - Chills [Unknown]
  - Dyspepsia [Unknown]
  - Vomiting [Unknown]

NARRATIVE: CASE EVENT DATE: 2015
